FAERS Safety Report 24210253 (Version 5)
Quarter: 2025Q4

REPORT INFORMATION
  Report Type: Spontaneous
  Country: EU (occurrence: EU)
  Receive Date: 20240814
  Receipt Date: 20251104
  Transmission Date: 20260117
  Serious: Yes (Hospitalization, Disabling, Other)
  Sender: NOVARTIS
  Company Number: EU-NOVPHSZ-PHHY2018NL072301

PATIENT
  Age: 72 Year

DRUGS (9)
  1. CYCLOSPORINE [Suspect]
     Active Substance: CYCLOSPORINE
     Indication: Immunosuppressant drug therapy
     Dosage: UNK
     Route: 065
  2. CYCLOSPORINE [Suspect]
     Active Substance: CYCLOSPORINE
     Indication: Immunosuppression
  3. AZATHIOPRINE [Suspect]
     Active Substance: AZATHIOPRINE
     Indication: Immunosuppressant drug therapy
     Dosage: UNK
     Route: 065
  4. AZATHIOPRINE [Suspect]
     Active Substance: AZATHIOPRINE
     Indication: Immunosuppression
  5. NORFLOXACIN [Suspect]
     Active Substance: NORFLOXACIN
     Indication: Immunosuppressant drug therapy
     Dosage: UNK
     Route: 065
  6. NORFLOXACIN [Suspect]
     Active Substance: NORFLOXACIN
     Indication: Prophylaxis
  7. NORFLOXACIN [Suspect]
     Active Substance: NORFLOXACIN
     Indication: Antibiotic prophylaxis
  8. NORFLOXACIN [Concomitant]
     Active Substance: NORFLOXACIN
     Indication: Antibiotic prophylaxis
     Dosage: UNK
     Route: 065
  9. NORFLOXACIN [Concomitant]
     Active Substance: NORFLOXACIN
     Dosage: UNK
     Route: 065

REACTIONS (15)
  - Meningitis pneumococcal [Recovered/Resolved with Sequelae]
  - Epilepsy [Unknown]
  - Seizure [Unknown]
  - Cognitive disorder [Unknown]
  - CSF white blood cell count increased [Unknown]
  - Mastoiditis [Unknown]
  - Ear infection [Recovered/Resolved]
  - CSF protein increased [Unknown]
  - Musculoskeletal stiffness [Recovered/Resolved]
  - Nausea [Recovered/Resolved]
  - CSF glucose decreased [Unknown]
  - Pyrexia [Recovered/Resolved]
  - Depressed level of consciousness [Recovered/Resolved]
  - Condition aggravated [Unknown]
  - Drug ineffective [Unknown]
